FAERS Safety Report 4615597-6 (Version None)
Quarter: 2005Q1

REPORT INFORMATION
  Report Type: 
  Country: None (occurrence: None)
  Receive Date: 20050322
  Receipt Date: 20050316
  Transmission Date: 20050727
  Serious: Yes (Hospitalization)
  Sender: FDA-Public Use
  Company Number: US-MERCK-0503USA02752

PATIENT
  Sex: Male

DRUGS (2)
  1. VIOXX [Suspect]
     Indication: INFLAMMATION
     Route: 048
     Dates: start: 20010101, end: 20030101
  2. COUMADIN [Suspect]
     Route: 065

REACTIONS (3)
  - CARDIAC DISORDER [None]
  - DRUG INTERACTION [None]
  - MYOCARDIAL INFARCTION [None]
